FAERS Safety Report 7281296-8 (Version None)
Quarter: 2011Q1

REPORT INFORMATION
  Report Type: 
  Country: None (occurrence: None)
  Receive Date: 20110208
  Receipt Date: 20110127
  Transmission Date: 20110831
  Serious: Yes (Hospitalization)
  Sender: FDA-Public Use
  Company Number: US-ASTRAZENECA-2010SE13999

PATIENT
  Age: 52 Year
  Sex: Female

DRUGS (3)
  1. TOPROL-XL [Suspect]
     Route: 048
  2. TOPROL-XL [Suspect]
     Route: 048
     Dates: start: 20090101
  3. TOPROL-XL [Suspect]
     Route: 048

REACTIONS (6)
  - FEELING ABNORMAL [None]
  - HYSTERECTOMY [None]
  - DIZZINESS [None]
  - ADVERSE REACTION [None]
  - DYSPNOEA [None]
  - CHEST DISCOMFORT [None]
